FAERS Safety Report 13508953 (Version 1)
Quarter: 2017Q2

REPORT INFORMATION
  Report Type: Spontaneous
  Country: JP (occurrence: JP)
  Receive Date: 20170503
  Receipt Date: 20170503
  Transmission Date: 20170830
  Serious: Yes (Other)
  Sender: FDA-Public Use
  Company Number: JP-TEVA-2017-JP-001171J

PATIENT
  Age: 35 Year
  Sex: Male

DRUGS (6)
  1. OMEPRAZOLE. [Concomitant]
     Active Substance: OMEPRAZOLE
     Indication: PROPHYLAXIS AGAINST GASTROINTESTINAL ULCER
     Dosage: 20 MILLIGRAM DAILY;
     Route: 042
     Dates: start: 20170307, end: 20170413
  2. ERYTHROCIN [Concomitant]
     Active Substance: ERYTHROMYCIN LACTOBIONATE
     Indication: STAPHYLOCOCCAL INFECTION
     Dosage: 1000 MILLIGRAM DAILY;
     Route: 042
     Dates: start: 20170413
  3. METOCLOPRAMIDE INJECTION 10MG TEVA [Suspect]
     Active Substance: METOCLOPRAMIDE
     Indication: DYSPEPSIA
     Dosage: 10 MILLIGRAM DAILY;
     Route: 042
     Dates: start: 20170412, end: 20170412
  4. KCL [Concomitant]
     Active Substance: POTASSIUM CHLORIDE
     Indication: MINERAL SUPPLEMENTATION
     Dosage: 1 DOSAGE FORMS DAILY;
     Route: 065
     Dates: end: 20170414
  5. PANTHENYL [Concomitant]
     Indication: VITAMIN SUPPLEMENTATION
     Dosage: 200 MILLIGRAM DAILY;
     Route: 042
     Dates: start: 20170412
  6. CUBICIN [Concomitant]
     Active Substance: DAPTOMYCIN
     Indication: STAPHYLOCOCCAL INFECTION
     Dosage: 350 MILLIGRAM DAILY;
     Route: 065
     Dates: start: 20170412

REACTIONS (3)
  - Respiratory arrest [Recovered/Resolved]
  - Seizure [Recovered/Resolved]
  - Gaze palsy [Unknown]

NARRATIVE: CASE EVENT DATE: 20170412
